FAERS Safety Report 21298299 (Version 1)
Quarter: 2022Q3

REPORT INFORMATION
  Report Type: Spontaneous
  Country: DE (occurrence: DE)
  Receive Date: 20220906
  Receipt Date: 20220906
  Transmission Date: 20221026
  Serious: Yes (Other)
  Sender: FDA-Public Use
  Company Number: DE-DCGMA-21195981

PATIENT
  Sex: Male
  Weight: 114 kg

DRUGS (1)
  1. CLINDAMYCIN [Suspect]
     Active Substance: CLINDAMYCIN
     Indication: Product used for unknown indication
     Dosage: 600 MG
     Route: 065

REACTIONS (2)
  - Renal impairment [None]
  - Renal impairment [Unknown]
